FAERS Safety Report 4953062-7 (Version None)
Quarter: 2006Q1

REPORT INFORMATION
  Report Type: 
  Country: None (occurrence: None)
  Receive Date: 20060321
  Receipt Date: 20060302
  Transmission Date: 20060701
  Serious: Yes (Hospitalization, Other)
  Sender: FDA-Public Use
  Company Number: S06-FRA-01226-01

PATIENT
  Age: 92 Year
  Sex: Female

DRUGS (5)
  1. MEMANTINE HCL [Suspect]
     Indication: DEMENTIA ALZHEIMER'S TYPE
     Dates: start: 20060201, end: 20060301
  2. ALDALIX [Concomitant]
  3. CORVASAL (MOLSIDOMINE) [Concomitant]
  4. STILNOX (ZOLPIDEM) [Concomitant]
  5. TIAPRIDAL (TIAPRIDE) [Concomitant]

REACTIONS (2)
  - CHOLELITHIASIS [None]
  - HEPATIC FUNCTION ABNORMAL [None]
